FAERS Safety Report 4747840-7 (Version None)
Quarter: 2005Q3

REPORT INFORMATION
  Report Type: 
  Country: None (occurrence: None)
  Receive Date: 20050818
  Receipt Date: 20040909
  Transmission Date: 20060218
  Serious: No
  Sender: FDA-Public Use
  Company Number: US-BRISTOL-MYERS SQUIBB COMPANY-12698528

PATIENT
  Age: 49 Year
  Sex: Female
  Weight: 54 kg

DRUGS (1)
  1. MEGESTROL ACETATE [Suspect]
     Indication: NEOPLASM MALIGNANT
     Route: 048
     Dates: start: 20040101

REACTIONS (1)
  - DYSPNOEA [None]
